FAERS Safety Report 10648022 (Version 2)
Quarter: 2015Q1

REPORT INFORMATION
  Report Type: Spontaneous
  Country: US (occurrence: US)
  Receive Date: 20141212
  Receipt Date: 20150115
  Transmission Date: 20150720
  Serious: No
  Sender: FDA-Public Use
  Company Number: US-BIOGENIDEC-2014BI131098

PATIENT
  Age: 56 Year
  Sex: Female

DRUGS (5)
  1. CELEBREX [Concomitant]
     Active Substance: CELECOXIB
  2. TECFIDERA [Suspect]
     Active Substance: DIMETHYL FUMARATE
     Indication: MULTIPLE SCLEROSIS
     Route: 048
     Dates: start: 201409
  3. ZANAFLEX [Concomitant]
     Active Substance: TIZANIDINE HYDROCHLORIDE
  4. NEURONTIN [Concomitant]
     Active Substance: GABAPENTIN
  5. TECFIDERA [Suspect]
     Active Substance: DIMETHYL FUMARATE
     Indication: MULTIPLE SCLEROSIS
     Route: 048

REACTIONS (4)
  - Muscle spasms [Unknown]
  - Drug ineffective [Unknown]
  - Multiple sclerosis relapse [Unknown]
  - Dysarthria [Unknown]

NARRATIVE: CASE EVENT DATE: 20141126
